FAERS Safety Report 5567067-9 (Version None)
Quarter: 2007Q4

REPORT INFORMATION
  Report Type: 
  Country: None (occurrence: None)
  Receive Date: 20071219
  Receipt Date: 20060609
  Transmission Date: 20080405
  Serious: Yes (Death, Hospitalization)
  Sender: FDA-Public Use
  Company Number: MX-ROCHE-451619

PATIENT
  Age: 18 Year
  Sex: Female
  Weight: 48 kg

DRUGS (4)
  1. ROCEPHIN [Suspect]
     Indication: PNEUMONIA
     Route: 042
     Dates: start: 20040712, end: 20040714
  2. PANTOPRAZOLE SODIUM [Concomitant]
  3. ACETAMINOPHEN [Concomitant]
  4. METILPREDNISOLONE [Concomitant]
     Dosage: DOSAGE REGIMEN = ONCE.
     Route: 042
     Dates: start: 20040711, end: 20040711

REACTIONS (4)
  - DEATH [None]
  - EPISTAXIS [None]
  - FLUID RETENTION [None]
  - RASH [None]
